FAERS Safety Report 22383724 (Version 2)
Quarter: 2023Q2

REPORT INFORMATION
  Report Type: Spontaneous
  Country: PL (occurrence: PL)
  Receive Date: 20230530
  Receipt Date: 20230628
  Transmission Date: 20230722
  Serious: Yes (Hospitalization, Other)
  Sender: FDA-Public Use
  Company Number: PL-SA-2023SA159807

PATIENT
  Age: 71 Year
  Sex: Male

DRUGS (5)
  1. ENOXAPARIN SODIUM [Suspect]
     Active Substance: ENOXAPARIN SODIUM
     Indication: Anticoagulant therapy
     Dosage: 40 MG, QD
     Dates: start: 2021
  2. NEBIVOLOL [Concomitant]
     Active Substance: NEBIVOLOL
     Indication: Hypertension
     Dosage: 5 MG, QD
     Route: 048
  3. LACIDIPINE [Concomitant]
     Active Substance: LACIDIPINE
     Indication: Hypertension
     Dosage: 4 MG, QD
     Route: 048
  4. METFORMIN [Concomitant]
     Active Substance: METFORMIN HYDROCHLORIDE
     Indication: Type 2 diabetes mellitus
     Dosage: 1000 MG
     Route: 048
  5. ROSUVASTATIN [Concomitant]
     Active Substance: ROSUVASTATIN
     Indication: Type V hyperlipidaemia
     Dosage: 5 MG, QD
     Route: 048

REACTIONS (5)
  - Heparin-induced thrombocytopenia [Recovering/Resolving]
  - Primary adrenal insufficiency [Recovering/Resolving]
  - Adrenal haemorrhage [Recovering/Resolving]
  - Abdominal pain [Recovering/Resolving]
  - Hyponatraemia [Recovering/Resolving]

NARRATIVE: CASE EVENT DATE: 20211101
